FAERS Safety Report 8256899-4 (Version None)
Quarter: 2012Q1

REPORT INFORMATION
  Report Type: 
  Country: None (occurrence: None)
  Receive Date: 20120322
  Receipt Date: 20120215
  Transmission Date: 20120608
  Serious: Yes (Life-Threatening, Hospitalization)
  Sender: FDA-Public Use
  Company Number: UTC-015656

PATIENT
  Age: 76 Year
  Sex: Male
  Weight: 80 kg

DRUGS (4)
  1. ADCIRCA [Concomitant]
  2. TYVASO [Suspect]
     Indication: PULMONARY ARTERIAL HYPERTENSION
     Dosage: 72 MCG (18 MCG, 4 IN 1 D) , INHALATION
     Route: 055
     Dates: start: 20120207
  3. REMODULIN [Suspect]
     Indication: PULMONARY ARTERIAL HYPERTENSION
     Dosage: 31.68 UG/KG (0.022 UG/KG, 1 IN 1 MIN) , SUBCUTANEOUS
     Route: 058
     Dates: start: 20110117
  4. LETAIRIS [Concomitant]

REACTIONS (1)
  - RESPIRATORY FAILURE [None]
